FAERS Safety Report 10339811 (Version 2)
Quarter: 2014Q4

REPORT INFORMATION
  Report Type: Spontaneous
  Country: US (occurrence: US)
  Receive Date: 20140724
  Receipt Date: 20141104
  Transmission Date: 20150528
  Serious: Yes (Hospitalization)
  Sender: FDA-Public Use
  Company Number: US-BAYER-2014-110063

PATIENT
  Age: 26 Year
  Sex: Female
  Weight: 65.76 kg

DRUGS (4)
  1. IRON [IRON] [Concomitant]
  2. LEXAPRO [Concomitant]
     Active Substance: ESCITALOPRAM OXALATE
     Dosage: UNK
     Dates: start: 2003
  3. MIRENA [Suspect]
     Active Substance: LEVONORGESTREL
     Indication: CONTRACEPTION
     Dosage: 20 MCG/24HR, CONT
     Route: 015
     Dates: start: 20120821, end: 20121228
  4. MIRENA [Suspect]
     Active Substance: LEVONORGESTREL
     Indication: CONTRACEPTION
     Dosage: 20 MCG/24HR, CONT
     Dates: start: 20081212, end: 20110722

REACTIONS (10)
  - Uterine perforation [None]
  - Injury [None]
  - Flank pain [None]
  - Scar [None]
  - Abdominal pain [None]
  - Anxiety [None]
  - Stress [None]
  - Emotional distress [None]
  - Device dislocation [None]
  - Pelvic pain [None]

NARRATIVE: CASE EVENT DATE: 201212
